FAERS Safety Report 9413665 (Version 1)
Quarter: 2013Q3

REPORT INFORMATION
  Report Type: Spontaneous
  Country: US (occurrence: US)
  Receive Date: 20130722
  Receipt Date: 20130722
  Transmission Date: 20140515
  Serious: Yes (Other)
  Sender: FDA-Public Use
  Company Number: US-RB-056298-13

PATIENT
  Age: 0 None
  Sex: Male

DRUGS (11)
  1. SUBOXONE TABLET [Suspect]
     Indication: DRUG DEPENDENCE
     Route: 064
     Dates: start: 201104
  2. SUBOXONE TABLET [Suspect]
     Route: 063
     Dates: start: 20110902, end: 20111202
  3. SUBUTEX [Suspect]
     Indication: DRUG DEPENDENCE
     Route: 064
     Dates: end: 20110902
  4. HEROIN [Suspect]
     Indication: DRUG DEPENDENCE
     Dosage: DOSING DETAILS UNKNOWN
     Route: 064
     Dates: end: 201104
  5. IMITREX [Suspect]
     Route: 064
     Dates: start: 201011, end: 20110902
  6. IMITREX [Suspect]
     Indication: MIGRAINE
     Dosage: DOSING DETAILS UNKNOWN
     Route: 063
     Dates: start: 20110902, end: 20111202
  7. VALTREX [Suspect]
     Indication: HERPES VIRUS INFECTION
     Dosage: DOSING DETAILS UNKNOWN
     Route: 064
     Dates: start: 201011, end: 20120902
  8. VALTREX [Suspect]
     Dosage: DOSING DETAILS UNKNOWN
     Route: 063
     Dates: start: 20110902, end: 20111202
  9. SEROQUEL [Suspect]
     Indication: SLEEP DISORDER
     Dosage: DOSING DETAILS UNKNOWN
     Route: 064
     Dates: start: 201011, end: 20110902
  10. VITAMINS [Suspect]
     Indication: NUTRITIONAL SUPPLEMENTATION
     Dosage: DOSING DETAILS UNKNOWN
     Route: 064
     Dates: start: 201011, end: 20110902
  11. NICOTINE [Suspect]
     Indication: NICOTINE DEPENDENCE
     Dosage: DOSING DETAILS UNKNOWN
     Route: 064
     Dates: end: 20110902

REACTIONS (4)
  - Foetal exposure during pregnancy [Recovered/Resolved]
  - Exposure during breast feeding [Recovered/Resolved]
  - Dental caries [Not Recovered/Not Resolved]
  - Low birth weight baby [Not Recovered/Not Resolved]
